FAERS Safety Report 11167007 (Version 1)
Quarter: 2015Q2

REPORT INFORMATION
  Report Type: Spontaneous
  Country: US (occurrence: None)
  Receive Date: 20150604
  Receipt Date: 20150604
  Transmission Date: 20150821
  Serious: Yes (Hospitalization)
  Sender: FDA-Public Use
  Company Number: None

PATIENT
  Age: 50 Year
  Sex: Male
  Weight: 101 kg

DRUGS (3)
  1. ELOXATIN [Suspect]
     Active Substance: OXALIPLATIN
     Dates: start: 20150430
  2. LEUCOVORIN [Suspect]
     Active Substance: LEUCOVORIN
  3. 5-FLUOROURACIL [Suspect]
     Active Substance: FLUOROURACIL

REACTIONS (7)
  - Gait disturbance [None]
  - Headache [None]
  - Vision blurred [None]
  - Mental disorder [None]
  - Hemiparesis [None]
  - Dysarthria [None]
  - Paraesthesia [None]

NARRATIVE: CASE EVENT DATE: 20150515
